FAERS Safety Report 20656799 (Version 5)
Quarter: 2024Q1

REPORT INFORMATION
  Report Type: Spontaneous
  Country: US (occurrence: US)
  Receive Date: 20220331
  Receipt Date: 20240125
  Transmission Date: 20240410
  Serious: No
  Sender: FDA-Public Use
  Company Number: US-BEIGENE USA INC-BGN-2022-003012

PATIENT

DRUGS (21)
  1. BRUKINSA [Interacting]
     Active Substance: ZANUBRUTINIB
     Indication: Product used for unknown indication
     Dosage: 160 MILLIGRAM, BID
     Route: 048
     Dates: start: 20220312
  2. PROBIOTICS NOS [Interacting]
     Active Substance: PROBIOTICS NOS
     Dosage: TAKE EVERY SINGLE MORNING
     Dates: start: 20220312
  3. ASPIRIN [Concomitant]
     Active Substance: ASPIRIN
     Dosage: TAKE EVERY NIGHT
  4. LIPITOR [Concomitant]
     Active Substance: ATORVASTATIN CALCIUM
  5. ALLEGRA [Concomitant]
     Active Substance: FEXOFENADINE HYDROCHLORIDE
     Dosage: 180 MILLIGRAM, QD
  6. FLUTICASONE [Concomitant]
     Active Substance: FLUTICASONE
     Dosage: 50 MICROGRAM, ONE SPRAY IN THE MORNING AND ONE SPRAY AT NIGHT
  7. AZELASTINE HYDROCHLORIDE [Concomitant]
     Active Substance: AZELASTINE HYDROCHLORIDE
     Dosage: 0.1%, ONE SPRAY IN THE MORNING AND ONE SPRAY AT NIGHT
  8. IPRATROPIUM BROMIDE [Concomitant]
     Active Substance: IPRATROPIUM BROMIDE\IPRATROPIUM BROMIDE ANHYDROUS
     Dosage: ONE SPRAY IN THE MORNING AND ONE SPRAY AT NIGHT
  9. ATORVASTATIN [Concomitant]
     Active Substance: ATORVASTATIN
     Dosage: 20 MILLIGRAM, EVERY EVENING
  10. LEVOTHYROXINE [Concomitant]
     Active Substance: LEVOTHYROXINE\LEVOTHYROXINE SODIUM
     Dosage: 137 MICROGRAM IN THE EVENING
  11. SINGULAIR [Concomitant]
     Active Substance: MONTELUKAST SODIUM
     Dosage: 10 MILLIGRAM IN THE EVENING
  12. MELATONIN [Concomitant]
     Active Substance: MELATONIN
     Dosage: 10 MILLIGRAM IN THE EVENING
  13. VITAMINS [Concomitant]
     Active Substance: VITAMINS
     Dosage: IN THE MORNING
  14. VITAMIN C [Concomitant]
     Active Substance: ASCORBIC ACID
     Dosage: 1000 UNITS IN THE MORNING
  15. GLUCOSAMINE MSM [Concomitant]
     Dosage: 1500 MILLIGRAM IN THE MORNING
  16. VITAMIN D3 [Concomitant]
     Active Substance: CHOLECALCIFEROL
     Dosage: 5000 INTERNATIONAL UNIT IN THE MORNING
  17. CHOLINE [Concomitant]
     Active Substance: CHOLINE
     Dosage: 500 MILLIGRAM IN THE MORNING
  18. HERBALS\TURMERIC [Concomitant]
     Active Substance: HERBALS\TURMERIC
     Dosage: 1000 MILLIGRAM IN THE MORNING
  19. FERROUS SULFATE [Concomitant]
     Active Substance: FERROUS SULFATE
     Dosage: 260 MILLIGRAM IN THE MORNING
  20. KRILL OIL [Concomitant]
     Active Substance: DIETARY SUPPLEMENT\KRILL OIL
     Dosage: 500 MILLIGRAM IN THE MORNING
  21. ASPIRIN [Concomitant]
     Active Substance: ASPIRIN
     Dosage: ONE AT NIGHT

REACTIONS (6)
  - Blood pressure increased [Unknown]
  - Drug interaction [Unknown]
  - Dizziness [Unknown]
  - Blood immunoglobulin A decreased [Unknown]
  - Blood immunoglobulin G decreased [Unknown]
  - Respiratory tract infection [Not Recovered/Not Resolved]

NARRATIVE: CASE EVENT DATE: 20220321
